FAERS Safety Report 13679049 (Version 1)
Quarter: 2017Q2

REPORT INFORMATION
  Report Type: Spontaneous
  Country: PT (occurrence: PT)
  Receive Date: 20170622
  Receipt Date: 20170622
  Transmission Date: 20170830
  Serious: Yes (Hospitalization)
  Sender: FDA-Public Use
  Company Number: PT-JNJFOC-20170613634

PATIENT

DRUGS (2)
  1. ADALIMUMAB [Concomitant]
     Active Substance: ADALIMUMAB
     Indication: INFLAMMATORY BOWEL DISEASE
     Route: 065
  2. INFLIXIMAB, RECOMBINANT [Suspect]
     Active Substance: INFLIXIMAB
     Indication: INFLAMMATORY BOWEL DISEASE
     Route: 042

REACTIONS (9)
  - Tuberculosis [Unknown]
  - Impetigo [Recovered/Resolved]
  - Butterfly rash [Recovered/Resolved]
  - Herpes zoster oticus [Recovered/Resolved]
  - Drug ineffective [Unknown]
  - Herpes zoster [Recovered/Resolved]
  - Urticaria [Recovered/Resolved]
  - Herpes simplex [Recovered/Resolved]
  - Pharyngitis [Unknown]
